FAERS Safety Report 8561917 (Version 2)
Quarter: 2012Q4

REPORT INFORMATION
  Report Type: 
  Country: US (occurrence: US)
  Receive Date: 20120515
  Receipt Date: 20121003
  Transmission Date: 20130627
  Serious: Yes (Hospitalization)
  Sender: FDA-Public Use
  Company Number: US-SANOFI-AVENTIS-2012SA015615

PATIENT
  Age: 75 Year
  Sex: Female

DRUGS (8)
  1. MULTAQ [Suspect]
     Indication: ATRIAL FIBRILLATION
     Route: 048
     Dates: start: 20101022, end: 201012
  2. COUMADIN [Concomitant]
  3. XANAX [Concomitant]
  4. SYNTHROID [Concomitant]
  5. MOBIC [Concomitant]
  6. CENTRUM SILVER [Concomitant]
  7. CALCIUM [Concomitant]
  8. ESTRADIOL [Concomitant]

REACTIONS (9)
  - Antinuclear antibody positive [Unknown]
  - Eosinophilia [Recovered/Resolved]
  - Drug-induced liver injury [Recovered/Resolved]
  - Transaminases increased [Recovered/Resolved]
  - Hyperbilirubinaemia [Recovered/Resolved]
  - International normalised ratio increased [Recovered/Resolved]
  - Abdominal pain upper [Recovered/Resolved]
  - Decreased appetite [Recovered/Resolved]
  - Fatigue [Recovered/Resolved]
